FAERS Safety Report 4374235-0 (Version None)
Quarter: 2004Q2

REPORT INFORMATION
  Report Type: 
  Country: None (occurrence: None)
  Receive Date: 20040609
  Receipt Date: 20040526
  Transmission Date: 20050107
  Serious: Yes (Death, Hospitalization)
  Sender: FDA-Public Use
  Company Number: DE-JNJFOC-20040404706

PATIENT
  Sex: Male

DRUGS (10)
  1. REOPRO [Suspect]
     Dosage: 0.125 UG/KG/MIN FOR 12 HOURS
  2. REOPRO [Suspect]
     Indication: ACUTE MYOCARDIAL INFARCTION
  3. RETEVASE [Suspect]
     Indication: ACUTE MYOCARDIAL INFARCTION
  4. ASPIRIN [Concomitant]
  5. HEPARIN [Concomitant]
  6. CLOPIDOGREL BISULFATE [Concomitant]
  7. DIURETICS [Concomitant]
  8. BETA BLOCKER [Concomitant]
  9. INSULIN [Concomitant]
  10. ANTIDIABETIC DRUG [Concomitant]

REACTIONS (2)
  - CARDIOGENIC SHOCK [None]
  - MITRAL VALVE INCOMPETENCE [None]
